FAERS Safety Report 25949405 (Version 1)
Quarter: 2025Q4

REPORT INFORMATION
  Report Type: Spontaneous
  Country: US (occurrence: None)
  Receive Date: 20251022
  Receipt Date: 20251022
  Transmission Date: 20260117
  Serious: Yes (Other)
  Sender: FDA-CTU
  Company Number: None

PATIENT
  Sex: Female

DRUGS (3)
  1. STELARA [Suspect]
     Active Substance: USTEKINUMAB
     Indication: Crohn^s disease
     Route: 058
     Dates: start: 20250916
  2. CHOLESTYRAMI POW RESIN [Concomitant]
  3. VITAMIN D CAP 400UNIT [Concomitant]

REACTIONS (4)
  - Quality of life decreased [None]
  - Diarrhoea [None]
  - Abdominal pain [None]
  - Weight fluctuation [None]
